FAERS Safety Report 25261575 (Version 1)
Quarter: 2025Q2

REPORT INFORMATION
  Report Type: Spontaneous
  Country: US (occurrence: US)
  Receive Date: 20250502
  Receipt Date: 20250502
  Transmission Date: 20250717
  Serious: Yes (Death, Other)
  Sender: AMGEN
  Company Number: US-AMGEN-USASP2025079681

PATIENT
  Age: 74 Year
  Sex: Female

DRUGS (6)
  1. RITUXIMAB [Suspect]
     Active Substance: RITUXIMAB
     Indication: Diffuse large B-cell lymphoma
     Route: 065
  2. METHOTREXATE [Concomitant]
     Active Substance: METHOTREXATE
  3. TEMOZOLOMIDE [Concomitant]
     Active Substance: TEMOZOLOMIDE
  4. IBRUTINIB [Concomitant]
     Active Substance: IBRUTINIB
  5. DEXAMETHASONE [Concomitant]
     Active Substance: DEXAMETHASONE
  6. DEXAMETHASONE [Concomitant]
     Active Substance: DEXAMETHASONE

REACTIONS (6)
  - Central nervous system vasculitis [Fatal]
  - Lymphoma [Fatal]
  - Diffuse large B-cell lymphoma [Unknown]
  - Ocular lymphoma [Unknown]
  - Therapeutic response decreased [Unknown]
  - Headache [Unknown]
